FAERS Safety Report 23430253 (Version 1)
Quarter: 2024Q1

REPORT INFORMATION
  Report Type: Other
  Country: GB (occurrence: GB)
  Receive Date: 20240123
  Receipt Date: 20240123
  Transmission Date: 20240410
  Serious: Yes (Other)
  Sender: FDA-Public Use
  Company Number: GB-MACLEODS PHARMACEUTICALS US LTD-MAC2024045356

PATIENT

DRUGS (1)
  1. LEVOFLOXACIN [Suspect]
     Active Substance: LEVOFLOXACIN
     Indication: Ulcerative keratitis
     Dosage: 1 GTT (EYE DROPS 5 TIMES A DAY)
     Route: 065
     Dates: start: 20231112, end: 20231129

REACTIONS (3)
  - Major depression [Recovered/Resolved]
  - Social avoidant behaviour [Unknown]
  - Suicidal ideation [Recovered/Resolved]

NARRATIVE: CASE EVENT DATE: 20231120
